FAERS Safety Report 14753620 (Version 1)
Quarter: 2018Q2

REPORT INFORMATION
  Report Type: Report from Study
  Country: US (occurrence: US)
  Receive Date: 20180412
  Receipt Date: 20180412
  Transmission Date: 20180711
  Serious: Yes (Death, Other)
  Sender: FDA-Public Use
  Company Number: US-TEVA-2018-US-879666

PATIENT
  Age: 45 Year
  Sex: Male

DRUGS (1)
  1. DIPHENHYDRAMINE. [Suspect]
     Active Substance: DIPHENHYDRAMINE
     Route: 065

REACTIONS (7)
  - Agitation [Unknown]
  - Arrhythmia [Unknown]
  - Rhabdomyolysis [Unknown]
  - Toxicity to various agents [Fatal]
  - Tachycardia [Unknown]
  - Delirium [Unknown]
  - Seizure [Unknown]
